FAERS Safety Report 12809508 (Version 2)
Quarter: 2016Q4

REPORT INFORMATION
  Report Type: Spontaneous
  Country: FR (occurrence: FR)
  Receive Date: 20161005
  Receipt Date: 20161112
  Transmission Date: 20170207
  Serious: Yes (Hospitalization)
  Sender: FDA-Public Use
  Company Number: FR-BAXTER-2016BAX049467

PATIENT
  Age: 60 Year
  Sex: Female

DRUGS (24)
  1. FLUOROURACIL PFIZER [Suspect]
     Active Substance: FLUOROURACIL
     Indication: INVASIVE DUCTAL BREAST CARCINOMA
     Dosage: FIRST COURSE
     Route: 042
     Dates: start: 20160721, end: 20160721
  2. ALIMEMAZINE [Concomitant]
     Active Substance: TRIMEPRAZINE
     Indication: PRODUCT USED FOR UNKNOWN INDICATION
     Dosage: DURATION: LONG TERM
     Route: 065
  3. BISOPROLOL [Concomitant]
     Active Substance: BISOPROLOL
     Indication: PRODUCT USED FOR UNKNOWN INDICATION
     Dosage: DURATION: LONG TERM
     Route: 065
  4. ENDOXAN 1000 MG, POUDRE POUR SOLUTION INJECTABLE [Suspect]
     Active Substance: CYCLOPHOSPHAMIDE
     Indication: INVASIVE DUCTAL BREAST CARCINOMA
     Dosage: FIRST COURSE
     Route: 042
     Dates: start: 20160721, end: 20160721
  5. FLUOROURACIL PFIZER [Suspect]
     Active Substance: FLUOROURACIL
     Dosage: SECOND COURSE, COMPLETE DOSE
     Route: 042
     Dates: start: 20160820, end: 20160820
  6. FLUOROURACIL PFIZER [Suspect]
     Active Substance: FLUOROURACIL
     Dosage: THIRD COURSE, COMPLETE DOSE
     Route: 042
     Dates: start: 20160908, end: 20160908
  7. EPIRUBICIN SANDOZ [Suspect]
     Active Substance: EPIRUBICIN
     Indication: INVASIVE DUCTAL BREAST CARCINOMA
     Dosage: FIRST COURSE, COMPLETE DOSE
     Route: 042
     Dates: start: 20160721, end: 20160721
  8. ALPRAZOLAM. [Concomitant]
     Active Substance: ALPRAZOLAM
     Indication: ANXIETY
     Dosage: FREQUENCY: 1 DOSAGE FORM (DF) IF ANXIETY, DURATION: LONG TERM
     Route: 065
  9. ANETHOL TRITHIONE [Concomitant]
     Active Substance: ANETHOLTRITHION
     Indication: PRODUCT USED FOR UNKNOWN INDICATION
     Dosage: DURATION: LONG TERM
     Route: 065
  10. ENDOXAN 1000 MG, POUDRE POUR SOLUTION INJECTABLE [Suspect]
     Active Substance: CYCLOPHOSPHAMIDE
     Dosage: THIRD COURSE, COMPLETE DOSE
     Route: 042
     Dates: start: 20160908, end: 20160908
  11. TRAMADOL. [Concomitant]
     Active Substance: TRAMADOL
     Indication: PRODUCT USED FOR UNKNOWN INDICATION
     Dosage: DURATION: LONG-TERM, DOSAGE FORM: SUSTAINED RELEASE
     Route: 065
  12. MOVICOL [Concomitant]
     Active Substance: POLYETHYLENE GLYCOL 3350\POTASSIUM CHLORIDE\SODIUM BICARBONATE\SODIUM CHLORIDE
     Indication: PRODUCT USED FOR UNKNOWN INDICATION
     Dosage: 2 SACHETS, DURATION: LONG TERM
     Route: 065
  13. ENDOXAN 1000 MG, POUDRE POUR SOLUTION INJECTABLE [Suspect]
     Active Substance: CYCLOPHOSPHAMIDE
     Dosage: SECOND COURSE, COMPLETE DOSE
     Route: 042
     Dates: start: 20160820, end: 20160820
  14. DEPAKOTE [Concomitant]
     Active Substance: DIVALPROEX SODIUM
     Indication: PRODUCT USED FOR UNKNOWN INDICATION
     Dosage: DURATION: LONG TERM
     Route: 065
  15. SODIUM DOCUSATE [Concomitant]
     Active Substance: DOCUSATE SODIUM
     Indication: PRODUCT USED FOR UNKNOWN INDICATION
     Dosage: DURATION: LONG TERM
     Route: 065
  16. HEPTAMINOL [Concomitant]
     Active Substance: HEPTAMINOL
     Indication: PRODUCT USED FOR UNKNOWN INDICATION
     Dosage: DURATION: LONG TERM
     Route: 065
  17. ARTISIAL [Concomitant]
     Active Substance: CALCIUM CHLORIDE\MAGNESIUM CHLORIDE\POTASSIUM CHLORIDE\POTASSIUM PHOSPHATE, DIBASIC\POTASSIUM PHOSPHATE, MONOBASIC\SODIUM CHLORIDE
     Indication: PRODUCT USED FOR UNKNOWN INDICATION
     Dosage: DURATION: LONG TERM
     Route: 065
  18. EPIRUBICIN SANDOZ [Suspect]
     Active Substance: EPIRUBICIN
     Dosage: SECOND COURSE
     Route: 042
     Dates: start: 20160820, end: 20160820
  19. QUETIAPINE. [Concomitant]
     Active Substance: QUETIAPINE
     Indication: PRODUCT USED FOR UNKNOWN INDICATION
     Dosage: DOSAGE FORM: SUSTAINED-RELEASE, DURATION: LONG TERM
     Route: 065
  20. LANSOYL [Concomitant]
     Active Substance: MINERAL OIL
     Indication: PRODUCT USED FOR UNKNOWN INDICATION
     Dosage: DURATION: LONG TERM
     Route: 065
  21. CERIS [Concomitant]
     Active Substance: TROSPIUM CHLORIDE
     Indication: PRODUCT USED FOR UNKNOWN INDICATION
     Dosage: DURAION: LONG TERM
     Route: 065
  22. EPIRUBICIN SANDOZ [Suspect]
     Active Substance: EPIRUBICIN
     Dosage: THIRD COURSE, COMPLETE DOSE
     Route: 042
     Dates: start: 20160908, end: 20160908
  23. ARIPIPRAZOLE. [Concomitant]
     Active Substance: ARIPIPRAZOLE
     Indication: PRODUCT USED FOR UNKNOWN INDICATION
     Dosage: DURATION: LONG TERM
     Route: 065
  24. PHLOROGLUCINOL [Concomitant]
     Active Substance: PHLOROGLUCINOL
     Indication: PRODUCT USED FOR UNKNOWN INDICATION
     Dosage: TWO TABLETS, DURATION: LONG TERM
     Route: 065

REACTIONS (6)
  - Pancytopenia [Recovered/Resolved]
  - Depression [Unknown]
  - Agranulocytosis [Recovered/Resolved]
  - Pancytopenia [Recovered/Resolved]
  - General physical health deterioration [Unknown]
  - Catheter site inflammation [Recovered/Resolved]

NARRATIVE: CASE EVENT DATE: 201607
